FAERS Safety Report 12089809 (Version 1)
Quarter: 2016Q1

REPORT INFORMATION
  Report Type: Spontaneous
  Country: US (occurrence: US)
  Receive Date: 20160218
  Receipt Date: 20160218
  Transmission Date: 20160526
  Serious: Yes (Death)
  Sender: FDA-Public Use
  Company Number: US-CUMBERLAND PHARMACEUTICALS INC.-1048068

PATIENT
  Age: 25 Year
  Sex: Male

DRUGS (1)
  1. ACETADOTE [Suspect]
     Active Substance: ACETYLCYSTEINE

REACTIONS (12)
  - Hepatomegaly [None]
  - Coagulopathy [None]
  - Multiple organ dysfunction syndrome [None]
  - Herpes simplex [None]
  - Lymphadenopathy [None]
  - Renal failure [None]
  - Platelet count decreased [None]
  - Hypotension [None]
  - Transaminases abnormal [None]
  - Tachycardia [None]
  - Leukopenia [None]
  - Hyperbilirubinaemia [None]
